FAERS Safety Report 23499545 (Version 1)
Quarter: 2024Q1

REPORT INFORMATION
  Report Type: Spontaneous
  Country: US (occurrence: US)
  Receive Date: 20240208
  Receipt Date: 20240208
  Transmission Date: 20240409
  Serious: No
  Sender: FDA-Public Use
  Company Number: US-BRISTOL-MYERS SQUIBB COMPANY-2024-020830

PATIENT
  Age: 70 Year
  Sex: Male
  Weight: 63.05 kg

DRUGS (4)
  1. REVLIMID [Suspect]
     Active Substance: LENALIDOMIDE
     Indication: Plasma cell myeloma
     Dosage: 20 MG DAILY (INDUCTION PHASE)?NOW 10 MG CAPSULE (MAINTENANCE PHASE)
     Route: 048
     Dates: start: 20221101
  2. REVLIMID [Suspect]
     Active Substance: LENALIDOMIDE
     Dosage: 20 MG DAILY (INDUCTION PHASE)?NOW 10 MG CAPSULE (MAINTENANCE PHASE)
  3. ASPIRIN [Concomitant]
     Active Substance: ASPIRIN
     Indication: Product used for unknown indication
  4. CALCIUM WITH D3 [Concomitant]
     Indication: Product used for unknown indication

REACTIONS (7)
  - Insomnia [Unknown]
  - Dehydration [Unknown]
  - Diarrhoea [Unknown]
  - Constipation [Unknown]
  - Headache [Unknown]
  - Weight decreased [Unknown]
  - Off label use [Unknown]

NARRATIVE: CASE EVENT DATE: 20221101
